FAERS Safety Report 10030999 (Version 1)
Quarter: 2014Q1

REPORT INFORMATION
  Report Type: Report from Study
  Country: US (occurrence: US)
  Receive Date: 20140324
  Receipt Date: 20140324
  Transmission Date: 20141002
  Serious: Yes (Hospitalization)
  Sender: FDA-Public Use
  Company Number: US-ROCHE-1367023

PATIENT
  Age: 72 Year
  Sex: Female
  Weight: 108.05 kg

DRUGS (10)
  1. ZELBORAF [Suspect]
     Indication: METASTATIC MALIGNANT MELANOMA
     Route: 048
     Dates: start: 20140228
  2. PEPCID [Concomitant]
     Route: 048
  3. BENADRYL (UNITED STATES) [Concomitant]
     Route: 048
  4. NORVASC [Concomitant]
     Route: 048
  5. BENICAR [Concomitant]
     Route: 048
  6. PLAQUENIL [Concomitant]
     Route: 048
  7. BABY ASA [Concomitant]
     Dosage: AT NIGHT
     Route: 065
  8. XANAX [Concomitant]
  9. ALBUTEROL [Concomitant]
     Route: 065
  10. ADVAIR [Concomitant]

REACTIONS (2)
  - Eyelid oedema [Recovering/Resolving]
  - Skin papilloma [Unknown]
